FAERS Safety Report 6963750-9 (Version None)
Quarter: 2010Q3

REPORT INFORMATION
  Report Type: 
  Country: None (occurrence: None)
  Receive Date: 20100902
  Receipt Date: 20100826
  Transmission Date: 20110219
  Serious: Yes (Other)
  Sender: FDA-Public Use
  Company Number: BE-AMGEN-KDL428602

PATIENT
  Age: 78 Year
  Sex: Male
  Weight: 50 kg

DRUGS (6)
  1. NPLATE [Suspect]
     Indication: IDIOPATHIC THROMBOCYTOPENIC PURPURA
     Dates: start: 20100101, end: 20100706
  2. LASIX [Concomitant]
     Route: 048
  3. MEDROL [Concomitant]
     Route: 048
  4. OMEPRAZOLE [Concomitant]
     Route: 048
  5. SELOZOK [Concomitant]
     Route: 048
  6. ZOCOR [Concomitant]
     Route: 048

REACTIONS (1)
  - PLATELET COUNT INCREASED [None]
